FAERS Safety Report 12346859 (Version 3)
Quarter: 2016Q3

REPORT INFORMATION
  Report Type: Report from Study
  Country: US (occurrence: US)
  Receive Date: 20160509
  Receipt Date: 20160701
  Transmission Date: 20161109
  Serious: No
  Sender: FDA-Public Use
  Company Number: US-AMGEN-USASP2016058006

PATIENT
  Age: 34 Year
  Sex: Female

DRUGS (1)
  1. ENBREL [Suspect]
     Active Substance: ETANERCEPT
     Indication: RHEUMATOID ARTHRITIS
     Dosage: 50 MG, QWK
     Route: 065
     Dates: start: 20160314, end: 201605

REACTIONS (9)
  - Headache [Unknown]
  - Nasopharyngitis [Unknown]
  - Cough [Unknown]
  - Injection site swelling [Unknown]
  - Respiratory tract congestion [Unknown]
  - Therapy non-responder [Unknown]
  - Sinusitis [Unknown]
  - Injection site erythema [Unknown]
  - Injection site irritation [Unknown]

NARRATIVE: CASE EVENT DATE: 2016
